FAERS Safety Report 16821482 (Version 4)
Quarter: 2019Q4

REPORT INFORMATION
  Report Type: Spontaneous
  Country: US (occurrence: US)
  Receive Date: 20190918
  Receipt Date: 20191223
  Transmission Date: 20200122
  Serious: Yes (Hospitalization)
  Sender: FDA-Public Use
  Company Number: US-PFIZER INC-2018420754

PATIENT
  Age: 96 Year
  Sex: Female
  Weight: 70 kg

DRUGS (3)
  1. LYRICA [Suspect]
     Active Substance: PREGABALIN
     Indication: HEADACHE
     Dosage: 25 MG, 2X/DAY (ONCE IN THE MORNING AND ONCE A NIGHT/ TWO TIMES DAILY)
     Route: 048
     Dates: start: 2018
  2. LYRICA [Suspect]
     Active Substance: PREGABALIN
     Dosage: 75 MG, DAILY (25 MG IN MORNING, 50 MG IN NIGHT)
     Route: 048
     Dates: start: 201903
  3. TYLENOL 8HR [Concomitant]
     Active Substance: ACETAMINOPHEN
     Indication: HEADACHE
     Dosage: UNK

REACTIONS (4)
  - Drug effective for unapproved indication [Recovered/Resolved]
  - Off label use [Recovered/Resolved]
  - Urinary tract infection [Recovered/Resolved]
  - Haemorrhage urinary tract [Recovered/Resolved]

NARRATIVE: CASE EVENT DATE: 2018
